FAERS Safety Report 5671350-6 (Version None)
Quarter: 2008Q1

REPORT INFORMATION
  Report Type: 
  Country: None (occurrence: None)
  Receive Date: 20080312
  Receipt Date: 20061011
  Transmission Date: 20080703
  Serious: Yes (Hospitalization)
  Sender: FDA-Public Use
  Company Number: PHBS2006SE15795

PATIENT
  Age: 90 Year
  Sex: Female

DRUGS (3)
  1. LAMISIL [Suspect]
     Indication: FUNGAL INFECTION
     Dosage: TOPICAL
     Route: 061
     Dates: start: 20060608, end: 20060615
  2. LAMISIL [Suspect]
     Indication: FUNGAL INFECTION
     Dosage: ORAL
     Route: 048
     Dates: start: 20060608, end: 20060615
  3. PREDNISOLONE TAB [Concomitant]

REACTIONS (6)
  - ANGIOEDEMA [None]
  - ERYTHEMA [None]
  - PNEUMONIA [None]
  - RASH MACULO-PAPULAR [None]
  - SKIN INFECTION [None]
  - SWELLING FACE [None]
